FAERS Safety Report 7813741-0 (Version None)
Quarter: 2011Q4

REPORT INFORMATION
  Report Type: 
  Country: None (occurrence: None)
  Receive Date: 20111014
  Receipt Date: 20110930
  Transmission Date: 20120403
  Serious: Yes (Hospitalization)
  Sender: FDA-Public Use
  Company Number: US-BAYER-2011-037205

PATIENT
  Age: 35 Year
  Sex: Female
  Weight: 81.633 kg

DRUGS (4)
  1. EPHEDRA [Concomitant]
  2. YASMIN [Suspect]
     Indication: MUSCLE SPASMS
  3. VIOXX [Concomitant]
  4. YASMIN [Suspect]
     Indication: ORAL CONTRACEPTION
     Dosage: UNK
     Dates: start: 20030301, end: 20030701

REACTIONS (7)
  - PLEURISY [None]
  - PULMONARY EMBOLISM [None]
  - MENTAL DISORDER [None]
  - ANXIETY [None]
  - DYSPNOEA [None]
  - INJURY [None]
  - EMOTIONAL DISTRESS [None]
